APPROVED DRUG PRODUCT: ORGARAN
Active Ingredient: DANAPAROID SODIUM
Strength: 750 UNITS/0.6ML
Dosage Form/Route: INJECTABLE;INJECTION
Application: N020430 | Product #001
Applicant: ASPEN GLOBAL INC
Approved: Dec 24, 1996 | RLD: No | RS: No | Type: DISCN